FAERS Safety Report 6802918-9 (Version None)
Quarter: 2010Q2

REPORT INFORMATION
  Report Type: 
  Country: None (occurrence: None)
  Receive Date: 20100628
  Receipt Date: 20100621
  Transmission Date: 20101027
  Serious: Yes (Other)
  Sender: FDA-Public Use
  Company Number: US-JNJFOC-20100400605

PATIENT
  Age: 62 Year
  Sex: Female
  Weight: 99.79 kg

DRUGS (9)
  1. IMODIUM A-D [Suspect]
     Route: 048
  2. IMODIUM A-D [Suspect]
     Indication: DIARRHOEA
     Dosage: 8 FULL OUNZES EVERY 2 DAYS FOR ABOUT 9 MONTHS
     Route: 048
  3. ZOLOFT [Concomitant]
     Indication: NERVOUSNESS
     Route: 065
  4. LIPITOR [Concomitant]
     Indication: BLOOD CHOLESTEROL
     Route: 065
  5. NEXIUM [Concomitant]
     Route: 065
  6. CLONAZEPAM [Concomitant]
     Indication: NERVOUSNESS
     Route: 065
  7. COZAAR [Concomitant]
     Indication: BLOOD PRESSURE
     Route: 065
  8. DETROL [Concomitant]
     Indication: DIARRHOEA
     Route: 065
  9. OXYCONTIN [Concomitant]
     Route: 065

REACTIONS (4)
  - ABDOMINAL DISTENSION [None]
  - DRUG INEFFECTIVE [None]
  - OVERDOSE [None]
  - SOMNOLENCE [None]
